FAERS Safety Report 4285578-3 (Version None)
Quarter: 2004Q1

REPORT INFORMATION
  Report Type: 
  Country: None (occurrence: None)
  Receive Date: 20040203
  Receipt Date: 20040116
  Transmission Date: 20041129
  Serious: Yes (Hospitalization)
  Sender: FDA-Public Use
  Company Number: DSA_23910_2004

PATIENT
  Age: 75 Year
  Sex: Female

DRUGS (10)
  1. DILTIAZEM [Suspect]
     Indication: ANGINA PECTORIS
     Dosage: 240 MG Q DAY PO
     Route: 048
     Dates: end: 20031001
  2. DIGITOXIN INJ [Suspect]
     Indication: CARDIAC FAILURE
     Dates: end: 20031001
  3. NEBIVOLOL HYDROCHLORIDE [Suspect]
     Indication: HYPERTENSION
     Dates: end: 20031001
  4. NITROGLYCERIN [Suspect]
     Indication: ANGINA PECTORIS
     Dosage: 0.8 MG Q DATY PO FOR  FEW YEARS
     Route: 048
  5. PIRETANIDE SODIUM [Concomitant]
  6. ARELIX ACE [Concomitant]
  7. ACETYLSALICYLIC ACID SRT [Concomitant]
  8. FENOFIBRATE [Concomitant]
  9. INSULIN INSOPHANE HUMAN SEMISYNTHETIC [Concomitant]
  10. JELLIN POLYVALENT [Concomitant]

REACTIONS (5)
  - BRADYARRHYTHMIA [None]
  - BRADYCARDIA [None]
  - CARDIOACTIVE DRUG LEVEL ABOVE THERAPEUTIC [None]
  - DRUG INTERACTION [None]
  - FATIGUE [None]
